FAERS Safety Report 25704163 (Version 1)
Quarter: 2025Q3

REPORT INFORMATION
  Report Type: Spontaneous
  Country: IN (occurrence: IN)
  Receive Date: 20250820
  Receipt Date: 20250820
  Transmission Date: 20251021
  Serious: Yes (Death, Other)
  Sender: MACLEODS
  Company Number: IN-MACLEODS PHARMA-MAC2015002163

PATIENT

DRUGS (3)
  1. CELECOXIB [Suspect]
     Active Substance: CELECOXIB
     Indication: Product used for unknown indication
     Dosage: 3RD WEEK OFF, DAILY
     Route: 065
  2. CAPECITABINE [Suspect]
     Active Substance: CAPECITABINE
     Indication: Chemotherapy
     Route: 048
  3. PACLITAXEL [Concomitant]
     Active Substance: PACLITAXEL
     Indication: Chemotherapy
     Route: 065

REACTIONS (5)
  - Hepatic failure [Fatal]
  - Blood bilirubin increased [Unknown]
  - Epistaxis [Unknown]
  - Diarrhoea [Recovered/Resolved]
  - Hepatic enzyme increased [Unknown]
